FAERS Safety Report 9778356 (Version 1)
Quarter: 2013Q4

REPORT INFORMATION
  Report Type: Spontaneous
  Country: US (occurrence: None)
  Receive Date: 20131219
  Receipt Date: 20131219
  Transmission Date: 20140711
  Serious: Yes (Death, Other)
  Sender: FDA-Public Use
  Company Number: SYM-2013-14172

PATIENT
  Age: 51 Year
  Sex: Male

DRUGS (6)
  1. TARGRETIN [Suspect]
     Indication: MYCOSIS FUNGOIDES
  2. ROMIDEPSIN [Suspect]
     Indication: PRODUCT USED FOR UNKNOWN INDICATION
  3. PRALATREXATE [Suspect]
  4. BRENTUXIMAB VEDOLIN [Suspect]
  5. DOXORUBICIN (DOXORUBICIN) (DOXORUBICIN) [Suspect]
     Indication: PRODUCT USED FOR UNKNOWN INDICATION
  6. CHOP (ALL OTHER THERAPEUTIC PRODUCTS) (NULL) [Suspect]
     Indication: PRODUCT USED FOR UNKNOWN INDICATION

REACTIONS (4)
  - Multi-organ failure [None]
  - Infection [None]
  - Nodule [None]
  - Erythema [None]
